FAERS Safety Report 6388600-3 (Version None)
Quarter: 2009Q3

REPORT INFORMATION
  Report Type: 
  Country: None (occurrence: None)
  Receive Date: 20090930
  Receipt Date: 20090804
  Transmission Date: 20100115
  Serious: Yes (Death, Life-Threatening, Hospitalization)
  Sender: FDA-Public Use
  Company Number: A-CH2009-27562

PATIENT
  Age: 75 Year
  Sex: Female
  Weight: 70 kg

DRUGS (8)
  1. TRACLEER [Suspect]
     Indication: PULMONARY ARTERIAL HYPERTENSION
     Dosage: 125 MG, BID, ORAL
     Route: 048
     Dates: start: 20070101, end: 20090704
  2. FUROSEMIDE [Concomitant]
  3. FENTANYL-100 [Concomitant]
  4. SPIRONOLACTONE [Concomitant]
  5. OXYCONTIN [Concomitant]
  6. PARACETAMOL (PARACETAMOL) [Concomitant]
  7. PHENPROCOUMON (PHENPROCOUMON) [Concomitant]
  8. PREDNISON (PREDNISONE) [Concomitant]

REACTIONS (6)
  - ANTI-ERYTHROPOIETIN ANTIBODY POSITIVE [None]
  - ARRHYTHMIA [None]
  - COOMBS DIRECT TEST POSITIVE [None]
  - HAEMOLYTIC ANAEMIA [None]
  - PULMONARY EMBOLISM [None]
  - RESPIRATORY FAILURE [None]
